FAERS Safety Report 26016118 (Version 1)
Quarter: 2025Q4

REPORT INFORMATION
  Report Type: Spontaneous
  Country: EU (occurrence: EU)
  Receive Date: 20251110
  Receipt Date: 20251110
  Transmission Date: 20260118
  Serious: Yes (Other)
  Sender: SANDOZ
  Company Number: None

PATIENT
  Age: 17 Day
  Sex: Male
  Weight: 4.24 kg

DRUGS (5)
  1. ACETAMINOPHEN [Suspect]
     Active Substance: ACETAMINOPHEN
     Indication: Meningitis enteroviral
     Dosage: 1310 MG, QD
     Route: 048
     Dates: start: 20250809, end: 20250809
  2. AMIKACIN [Concomitant]
     Active Substance: AMIKACIN
     Indication: Meningitis enteroviral
     Dosage: UNK
     Route: 042
  3. CEFOTAXIME SODIUM [Concomitant]
     Active Substance: CEFOTAXIME SODIUM
     Dosage: 150 MG/KG, QD
     Route: 042
     Dates: start: 20250810, end: 20250810
  4. CEFOTAXIME SODIUM [Concomitant]
     Active Substance: CEFOTAXIME SODIUM
     Indication: Meningitis enteroviral
     Dosage: 297 MG/KG, QD
     Route: 042
     Dates: start: 20250808, end: 20250808
  5. CEFOTAXIME SODIUM [Concomitant]
     Active Substance: CEFOTAXIME SODIUM
     Dosage: 450 MG/KG, QD
     Route: 042
     Dates: start: 20250809, end: 20250809

REACTIONS (3)
  - Prothrombin time ratio decreased [Recovered/Resolved]
  - Drug level increased [Recovered/Resolved]
  - Accidental overdose [Recovered/Resolved]

NARRATIVE: CASE EVENT DATE: 20250809
